FAERS Safety Report 20469979 (Version 3)
Quarter: 2022Q2

REPORT INFORMATION
  Report Type: Spontaneous
  Country: DE (occurrence: DE)
  Receive Date: 20220214
  Receipt Date: 20220406
  Transmission Date: 20220720
  Serious: Yes (Death, Other)
  Sender: FDA-Public Use
  Company Number: DE-BRISTOL-MYERS SQUIBB COMPANY-BMS-2022-014108

PATIENT
  Sex: Male

DRUGS (4)
  1. OPDIVO [Suspect]
     Active Substance: NIVOLUMAB
     Indication: Metastatic malignant melanoma
     Dosage: 3 CYCLE
     Route: 065
     Dates: start: 20200108, end: 202003
  2. OPDIVO [Suspect]
     Active Substance: NIVOLUMAB
     Dosage: UNK
     Route: 065
  3. YERVOY [Suspect]
     Active Substance: IPILIMUMAB
     Indication: Metastatic malignant melanoma
     Dosage: 2 TIMES 4 CYCLES
     Route: 065
     Dates: start: 20201014, end: 202012
  4. OPDIVO [Suspect]
     Active Substance: NIVOLUMAB
     Dosage: UNK
     Route: 065

REACTIONS (7)
  - Metastatic malignant melanoma [Fatal]
  - Chronic myeloid leukaemia [Fatal]
  - Metastases to spleen [Unknown]
  - Anaemia [Unknown]
  - White blood cell count increased [Unknown]
  - Platelet count increased [Unknown]
  - Off label use [Unknown]

NARRATIVE: CASE EVENT DATE: 20210901
